FAERS Safety Report 18275948 (Version 2)
Quarter: 2020Q4

REPORT INFORMATION
  Report Type: Other
  Country: US (occurrence: US)
  Receive Date: 20200916
  Receipt Date: 20201017
  Transmission Date: 20210113
  Serious: Yes (Other)
  Sender: FDA-Public Use
  Company Number: US-ROCHE-2674391

PATIENT
  Age: 33 Year
  Sex: Male
  Weight: 56.75 kg

DRUGS (8)
  1. VITAMIN D3 [Concomitant]
     Active Substance: CHOLECALCIFEROL
     Indication: MULTIPLE SCLEROSIS
  2. SPIRULINA [Concomitant]
     Active Substance: SPIRULINA
     Indication: MULTIPLE SCLEROSIS
  3. VITAMIN C [Concomitant]
     Active Substance: ASCORBIC ACID
     Indication: MULTIPLE SCLEROSIS
  4. VSL#3 [Concomitant]
     Active Substance: PROBIOTICS NOS
     Indication: MULTIPLE SCLEROSIS
  5. ZINC. [Concomitant]
     Active Substance: ZINC
  6. VITAMIN K2 [Concomitant]
     Active Substance: MENAQUINONE 6
     Indication: MULTIPLE SCLEROSIS
  7. COD LIVER OIL [Concomitant]
     Active Substance: COD LIVER OIL
     Indication: MULTIPLE SCLEROSIS
  8. OCREVUS [Suspect]
     Active Substance: OCRELIZUMAB
     Indication: RELAPSING-REMITTING MULTIPLE SCLEROSIS
     Route: 042
     Dates: start: 201911

REACTIONS (7)
  - Cough [Not Recovered/Not Resolved]
  - Eye disorder [Unknown]
  - Optic pathway injury [Unknown]
  - Multiple sclerosis [Unknown]
  - Nausea [Unknown]
  - Dyspepsia [Not Recovered/Not Resolved]
  - Chest discomfort [Recovered/Resolved]

NARRATIVE: CASE EVENT DATE: 202002
